FAERS Safety Report 14431018 (Version 2)
Quarter: 2018Q1

REPORT INFORMATION
  Report Type: Spontaneous
  Country: DK (occurrence: DK)
  Receive Date: 20180124
  Receipt Date: 20180124
  Transmission Date: 20180509
  Serious: Yes (Other)
  Sender: FDA-Public Use
  Company Number: DK-CONCORDIA PHARMACEUTICALS INC.-E2B_00009528

PATIENT
  Age: 33 Year
  Sex: Male

DRUGS (6)
  1. TETRACYKLIN ^DAK^ [Concomitant]
     Indication: ACNE
     Dosage: STYRKE: 250 MG.
     Route: 048
     Dates: start: 20150703
  2. VITAMIN D [Concomitant]
     Active Substance: CHOLECALCIFEROL
     Indication: PRODUCT USED FOR UNKNOWN INDICATION
  3. CALCIUM [Concomitant]
     Active Substance: CALCIUM
     Indication: PRODUCT USED FOR UNKNOWN INDICATION
  4. DEPO-MEDROL [Concomitant]
     Active Substance: METHYLPREDNISOLONE ACETATE
     Indication: URTICARIA
     Dosage: STYRKE: 40 MG/ML
     Dates: start: 20140917
  5. PREDNISOLONE. [Suspect]
     Active Substance: PREDNISOLONE
     Indication: DERMATITIS ALLERGIC
     Dosage: DOSIS: VARIERENDE. STYRKE: VARIERENDE.
     Route: 048
     Dates: start: 20140731
  6. TESTOSTERONE. [Concomitant]
     Active Substance: TESTOSTERONE
     Indication: PRODUCT USED FOR UNKNOWN INDICATION

REACTIONS (6)
  - Tooth erosion [Unknown]
  - Arthralgia [Unknown]
  - Libido decreased [Unknown]
  - Photosensitivity reaction [Unknown]
  - Back pain [Unknown]
  - Osteopenia [Unknown]
